FAERS Safety Report 8971114 (Version 1)
Quarter: 2012Q4

REPORT INFORMATION
  Report Type: 
  Country: CA (occurrence: CA)
  Receive Date: 20121218
  Receipt Date: 20121218
  Transmission Date: 20130627
  Serious: Yes (Death, Hospitalization, Other)
  Sender: FDA-Public Use
  Company Number: CA-PFIZER INC-2012314862

PATIENT
  Age: 93 Year
  Sex: Male

DRUGS (2)
  1. CELEBREX [Suspect]
     Dosage: 200 mg
     Dates: start: 200103
  2. CELEBREX [Suspect]
     Dosage: 200 mg
     Dates: start: 200104

REACTIONS (3)
  - Renal failure [Fatal]
  - Chronic obstructive pulmonary disease [Fatal]
  - Arteriosclerosis coronary artery [Fatal]
